FAERS Safety Report 5383725-3 (Version None)
Quarter: 2007Q3

REPORT INFORMATION
  Report Type: 
  Country: None (occurrence: None)
  Receive Date: 20070711
  Receipt Date: 20070705
  Transmission Date: 20080115
  Serious: Yes (Other)
  Sender: FDA-Public Use
  Company Number: GB-BAYER-200713282GDS

PATIENT
  Age: 68 Year
  Sex: Female

DRUGS (2)
  1. ASPIRIN [Suspect]
     Indication: EPILEPSY
     Route: 065
  2. VALPROIC ACID [Interacting]
     Indication: EPILEPSY
     Route: 065

REACTIONS (1)
  - GRAND MAL CONVULSION [None]
